FAERS Safety Report 10982879 (Version 1)
Quarter: 2015Q2

REPORT INFORMATION
  Report Type: Spontaneous
  Country: US (occurrence: None)
  Receive Date: 20150402
  Receipt Date: 20150402
  Transmission Date: 20150821
  Serious: Yes (Other)
  Sender: FDA-Public Use
  Company Number: None

PATIENT
  Age: 50 Year
  Sex: Female
  Weight: 85.73 kg

DRUGS (7)
  1. WALGREENS MUCUS RELIEF CHEST CON 400 MG GUAIFENESIN [Suspect]
     Active Substance: GUAIFENESIN
     Indication: PULMONARY CONGESTION
     Dosage: 1 PILL EVERY 4 HOURS TAKEN BY MOUTH
     Route: 048
     Dates: start: 20150318, end: 20150320
  2. OMPRAZOLE [Concomitant]
     Active Substance: OMEPRAZOLE
  3. ORTHO TRI CYCLEN [Concomitant]
     Active Substance: ETHINYL ESTRADIOL\NORGESTIMATE
  4. COREG [Concomitant]
     Active Substance: CARVEDILOL
  5. HYDROCHLOROTHIAZIDE. [Concomitant]
     Active Substance: HYDROCHLOROTHIAZIDE
  6. ZYRTEC [Concomitant]
     Active Substance: CETIRIZINE HYDROCHLORIDE
  7. WALGREENS MUCUS RELIEF CHEST CON 400 MG GUAIFENESIN [Suspect]
     Active Substance: GUAIFENESIN
     Indication: BRONCHITIS
     Dosage: 1 PILL EVERY 4 HOURS TAKEN BY MOUTH
     Route: 048
     Dates: start: 20150318, end: 20150320

REACTIONS (4)
  - Ageusia [None]
  - Dysgeusia [None]
  - Parosmia [None]
  - Anosmia [None]

NARRATIVE: CASE EVENT DATE: 20150318
